FAERS Safety Report 6438082-8 (Version None)
Quarter: 2009Q4

REPORT INFORMATION
  Report Type: 
  Country: None (occurrence: None)
  Receive Date: 20091112
  Receipt Date: 20091106
  Transmission Date: 20100525
  Serious: Yes (Other)
  Sender: FDA-Public Use
  Company Number: US-ELI_LILLY_AND_COMPANY-US200911001967

PATIENT
  Sex: Male

DRUGS (14)
  1. HUMALOG [Suspect]
     Dosage: 22 U, UNK
     Dates: start: 19970101
  2. HUMALOG [Suspect]
     Dosage: 16 U, UNK
     Dates: start: 20091001
  3. CELLCEPT [Concomitant]
     Dosage: 750 MG, 2/D
  4. NEUROL [Concomitant]
     Dosage: 200 MG, UNK
  5. PREDNISONE [Concomitant]
     Dosage: 12.5 MG, UNK
  6. BENICAR [Concomitant]
     Dosage: 20 MG, UNK
  7. SOLATRAN [Concomitant]
     Dosage: 20 MG, UNK
  8. CLONIDINE [Concomitant]
     Dosage: 0.2 MG, UNK
  9. ALLOPURINOL [Concomitant]
     Dosage: 100 MG, UNK
  10. LASIX [Concomitant]
     Dosage: 80 MG, UNK
  11. BABY ASPIRIN [Concomitant]
  12. NIACIN [Concomitant]
     Dosage: 2000 MG, UNK
  13. PEPCID [Concomitant]
     Dosage: 20 MG, UNK
  14. LOVAZA [Concomitant]
     Dosage: 1000 MG, UNK

REACTIONS (9)
  - BLOOD GLUCOSE INCREASED [None]
  - CARDIAC DISORDER [None]
  - CENTRAL OBESITY [None]
  - GAIT DISTURBANCE [None]
  - PAIN IN EXTREMITY [None]
  - POOR PERIPHERAL CIRCULATION [None]
  - RENAL IMPAIRMENT [None]
  - RENAL TRANSPLANT [None]
  - WRONG TECHNIQUE IN DRUG USAGE PROCESS [None]
